FAERS Safety Report 6957705-8 (Version None)
Quarter: 2010Q3

REPORT INFORMATION
  Report Type: 
  Country: None (occurrence: None)
  Receive Date: 20100831
  Receipt Date: 20100824
  Transmission Date: 20110219
  Serious: Yes (Death, Hospitalization)
  Sender: FDA-Public Use
  Company Number: US-SANOFI-AVENTIS-2010SA051248

PATIENT
  Age: 63 Year
  Sex: Male
  Weight: 93 kg

DRUGS (20)
  1. LOVENOX [Suspect]
     Indication: DEEP VEIN THROMBOSIS
     Route: 058
     Dates: start: 20080102, end: 20080106
  2. HEPARIN [Suspect]
     Indication: DEEP VEIN THROMBOSIS
     Route: 065
     Dates: start: 20080106, end: 20080110
  3. SINGULAIR [Concomitant]
  4. ASPIRIN [Concomitant]
  5. SIMVASTATIN [Concomitant]
  6. NIACIN [Concomitant]
  7. VALSARTAN [Concomitant]
  8. LANOXIN [Concomitant]
  9. PERCOCET [Concomitant]
  10. ULTRAM [Concomitant]
  11. ALL OTHER THERAPEUTIC PRODUCTS [Concomitant]
  12. ATROVENT [Concomitant]
  13. XOPENEX [Concomitant]
  14. ADVAIR DISKUS 100/50 [Concomitant]
  15. LUNESTA [Concomitant]
  16. COLACE [Concomitant]
  17. TYLENOL-500 [Concomitant]
  18. FLAGYL [Concomitant]
  19. LEVAQUIN [Concomitant]
  20. COUMADIN [Concomitant]

REACTIONS (12)
  - ATRIAL FIBRILLATION [None]
  - CARDIO-RESPIRATORY ARREST [None]
  - DYSPNOEA [None]
  - HAEMOPTYSIS [None]
  - HYPERHIDROSIS [None]
  - HYPOTENSION [None]
  - HYPOXIA [None]
  - INTRACARDIAC THROMBUS [None]
  - NAUSEA [None]
  - PULMONARY EMBOLISM [None]
  - TACHYCARDIA [None]
  - VOMITING [None]
